FAERS Safety Report 10007316 (Version 1)
Quarter: 2014Q1

REPORT INFORMATION
  Report Type: Spontaneous
  Country: US (occurrence: US)
  Receive Date: 20140313
  Receipt Date: 20140313
  Transmission Date: 20141002
  Serious: Yes (Hospitalization, Other)
  Sender: FDA-Public Use
  Company Number: US-TEVA-468440USA

PATIENT
  Age: 81 Year
  Sex: Female

DRUGS (1)
  1. LOPERAMIDE [Suspect]
     Indication: DIARRHOEA
     Dosage: GIVEN TO HER AT INCREASING DOSES (THE EXACT AMOUNT WAS UNCLEAR) BY HER FAMILY OVER THE PREVIOUS YEAR
     Route: 065

REACTIONS (2)
  - Intestinal obstruction [Recovered/Resolved]
  - Hydronephrosis [Recovered/Resolved]
